FAERS Safety Report 20987107 (Version 2)
Quarter: 2022Q3

REPORT INFORMATION
  Report Type: Spontaneous
  Country: CA (occurrence: CA)
  Receive Date: 20220621
  Receipt Date: 20220727
  Transmission Date: 20221027
  Serious: Yes (Other)
  Sender: FDA-Public Use
  Company Number: CA-PFIZER INC-202200604280

PATIENT
  Age: 39 Year
  Sex: Female

DRUGS (1)
  1. ABRILADA [Suspect]
     Active Substance: ADALIMUMAB-AFZB
     Indication: Crohn^s disease
     Dosage: 40 MG, WEEKLY (EVERY 7 DAYS)
     Route: 058
     Dates: start: 20220509

REACTIONS (2)
  - Abdominoplasty [Unknown]
  - Off label use [Unknown]

NARRATIVE: CASE EVENT DATE: 20220602
